FAERS Safety Report 22340634 (Version 3)
Quarter: 2023Q2

REPORT INFORMATION
  Report Type: Report from Study
  Country: CA (occurrence: CA)
  Receive Date: 20230518
  Receipt Date: 20230629
  Transmission Date: 20230721
  Serious: Yes (Hospitalization, Other)
  Sender: FDA-Public Use
  Company Number: CA-JNJFOC-20230533967

PATIENT
  Age: 80 Year
  Sex: Female
  Weight: 74 kg

DRUGS (1)
  1. REMICADE [Suspect]
     Active Substance: INFLIXIMAB
     Indication: Crohn^s disease
     Dosage: EXPIRY DATE: NOV-2025
     Route: 042

REACTIONS (5)
  - Renal mass [Unknown]
  - Renal failure [Unknown]
  - Intestinal obstruction [Recovering/Resolving]
  - Asthenia [Unknown]
  - Feeding disorder [Unknown]

NARRATIVE: CASE EVENT DATE: 20230101
